FAERS Safety Report 10277133 (Version 1)
Quarter: 2014Q3

REPORT INFORMATION
  Report Type: Spontaneous
  Country: DE (occurrence: DE)
  Receive Date: 20140703
  Receipt Date: 20140703
  Transmission Date: 20150326
  Serious: Yes (Other)
  Sender: FDA-Public Use
  Company Number: DE-BAYER-2014-099181

PATIENT
  Sex: Male

DRUGS (1)
  1. NEXAVAR [Suspect]
     Active Substance: SORAFENIB

REACTIONS (6)
  - Fibrin degradation products increased [None]
  - C-reactive protein increased [None]
  - Dysphonia [None]
  - Off label use [None]
  - Dyspnoea [None]
  - Muscle spasms [None]
